FAERS Safety Report 15434970 (Version 1)
Quarter: 2018Q3

REPORT INFORMATION
  Report Type: Spontaneous
  Country: IL (occurrence: IL)
  Receive Date: 20180927
  Receipt Date: 20180927
  Transmission Date: 20181010
  Serious: Yes (Hospitalization, Other)
  Sender: FDA-Public Use
  Company Number: IL-JNJFOC-20180925083

PATIENT
  Sex: Male

DRUGS (1)
  1. FENTANYL. [Suspect]
     Active Substance: FENTANYL
     Indication: PRODUCT USED FOR UNKNOWN INDICATION
     Dosage: CONTINUOUS USE OF EXCESSIVE AMOUNTS OF FENTANYL DURING THE TWO WEEKS PRIOR TO THE ADMISSION
     Route: 065

REACTIONS (2)
  - Shared psychotic disorder [Recovered/Resolved]
  - Drug abuse [Recovered/Resolved]
